FAERS Safety Report 9232175 (Version 1)
Quarter: 2013Q2

REPORT INFORMATION
  Report Type: Report from Study
  Country: US (occurrence: US)
  Receive Date: 20130415
  Receipt Date: 20130415
  Transmission Date: 20140414
  Serious: Yes (Death, Hospitalization)
  Sender: FDA-Public Use
  Company Number: US-BRISTOL-MYERS SQUIBB COMPANY-17316498

PATIENT
  Age: 56 Year
  Sex: Male

DRUGS (16)
  1. BLINDED: IPILIMUMAB [Suspect]
     Indication: NON-SMALL CELL LUNG CANCER
     Dosage: INTERRUPTED ON 28DEC2012,10MG/KG
     Route: 042
     Dates: start: 20121228, end: 20121228
  2. CARBOPLATIN [Suspect]
     Indication: NON-SMALL CELL LUNG CANCER
     Dosage: INTERRUPTED ON 28DEC2012,AUC6
     Route: 042
     Dates: start: 20121101, end: 20121228
  3. TAXOL [Suspect]
     Indication: NON-SMALL CELL LUNG CANCER
     Dosage: INTERRUPTED ON 28DEC2012,175MG/M2
     Route: 042
     Dates: start: 20121101, end: 20121228
  4. BLINDED: PLACEBO [Suspect]
     Indication: NON-SMALL CELL LUNG CANCER
     Dosage: INTERRUPTED ON 28DEC2012
     Route: 042
     Dates: start: 20121228, end: 20121228
  5. ADVAIR DISKUS [Concomitant]
  6. LORAZEPAM [Concomitant]
     Dates: start: 20121022
  7. IPRATROPIUM BROMIDE [Concomitant]
  8. DEXAMETHASONE [Concomitant]
     Dates: start: 20121022
  9. ENTOCORT [Concomitant]
     Dates: start: 20130129, end: 20130205
  10. LEXAPRO [Concomitant]
     Dates: start: 20121122
  11. SINGULAIR [Concomitant]
  12. MUCINEX [Concomitant]
  13. OXYCODONE [Concomitant]
     Dates: start: 20121105
  14. SPIRIVA [Concomitant]
     Dates: start: 20130127
  15. PRAMIPEXOLE HCL [Concomitant]
  16. PROVENTIL [Concomitant]
     Dates: start: 20130201

REACTIONS (5)
  - Sepsis [Fatal]
  - Multi-organ failure [Fatal]
  - Colitis [Recovered/Resolved]
  - Ileal perforation [Not Recovered/Not Resolved]
  - Dysuria [Recovered/Resolved]
